FAERS Safety Report 6249085-0 (Version None)
Quarter: 2009Q2

REPORT INFORMATION
  Report Type: 
  Country: None (occurrence: None)
  Receive Date: 20090624
  Receipt Date: 20090624
  Transmission Date: 20091009
  Serious: Yes (Death)
  Sender: FDA-Public Use
  Company Number: None

PATIENT
  Age: 23 Year
  Sex: Female
  Weight: 99.7913 kg

DRUGS (1)
  1. NUVARING [Suspect]
     Indication: CONTRACEPTION
     Dosage: ONE MONTHLY ENDOCERVICAL
     Route: 005
     Dates: start: 20061031, end: 20070421

REACTIONS (6)
  - CONVULSION [None]
  - DIZZINESS [None]
  - INFLUENZA LIKE ILLNESS [None]
  - LOSS OF CONSCIOUSNESS [None]
  - PULMONARY EMBOLISM [None]
  - RESPIRATORY ARREST [None]
